FAERS Safety Report 5115263-7 (Version None)
Quarter: 2006Q3

REPORT INFORMATION
  Report Type: 
  Country: None (occurrence: None)
  Receive Date: 20060926
  Receipt Date: 20060815
  Transmission Date: 20061208
  Serious: Yes (Hospitalization)
  Sender: FDA-Public Use
  Company Number: US-GLAXOSMITHKLINE-A0616773A

PATIENT
  Age: 44 Year
  Sex: Female

DRUGS (2)
  1. FLUTICASONE PROPIONATE [Suspect]
     Indication: ASTHMA
     Dosage: 1PUFF TWICE PER DAY
     Route: 055
     Dates: start: 20051220, end: 20060816
  2. TRAZODONE HCL [Concomitant]
     Indication: SLEEP DISORDER
     Dosage: 50MG PER DAY
     Route: 048
     Dates: start: 20040101

REACTIONS (5)
  - ATRIAL FIBRILLATION [None]
  - BLOOD PRESSURE INCREASED [None]
  - CARDIOMEGALY [None]
  - PALPITATIONS [None]
  - SYNCOPE [None]
